FAERS Safety Report 10683478 (Version 1)
Quarter: 2014Q4

REPORT INFORMATION
  Report Type: Spontaneous
  Country: BR (occurrence: BR)
  Receive Date: 20141230
  Receipt Date: 20141230
  Transmission Date: 20150529
  Serious: Yes (Hospitalization)
  Sender: FDA-Public Use
  Company Number: BR-ABBOTT-14X-020-1201645-00

PATIENT
  Age: 89 Year
  Sex: Female
  Weight: 77 kg

DRUGS (11)
  1. ENALAPRIL MALEATE. [Concomitant]
     Active Substance: ENALAPRIL MALEATE
     Indication: PRODUCT USED FOR UNKNOWN INDICATION
     Route: 048
     Dates: start: 2011
  2. VITAMIN D [Concomitant]
     Active Substance: CHOLECALCIFEROL
     Indication: PRODUCT USED FOR UNKNOWN INDICATION
     Route: 048
     Dates: start: 2011
  3. OMEPRAZOLE. [Concomitant]
     Active Substance: OMEPRAZOLE
     Indication: FLATULENCE
     Dosage: DAILY DOSE: 1 CAPSULE; 15 MINUTES BEFORE DINNER
     Dates: start: 2011
  4. MACRODANTIN [Concomitant]
     Active Substance: NITROFURANTOIN
     Indication: PRODUCT USED FOR UNKNOWN INDICATION
     Route: 048
  5. RYTMONORM [Suspect]
     Active Substance: PROPAFENONE
     Indication: CARDIAC DISORDER
     Route: 048
  6. DIGEDRAT [Concomitant]
     Indication: DYSPEPSIA
  7. CALCIUM [Concomitant]
     Active Substance: CALCIUM
     Indication: PRODUCT USED FOR UNKNOWN INDICATION
     Route: 048
     Dates: start: 2011
  8. DIGEDRAT [Concomitant]
     Indication: FLATULENCE
     Dosage: DAILY DOSE: 2 CAPSULES; 15 MINUTES BEFORE LUNCH AND BEFORE DINNER
     Route: 048
     Dates: start: 2011
  9. LEVOTHYROXINE SODIUM. [Concomitant]
     Active Substance: LEVOTHYROXINE SODIUM
     Indication: THYROIDECTOMY
     Dosage: DAILY DOSE: 100 MICROGRAM; BEFORE BREAKFAST
     Route: 048
  10. METFORMIN HYDROCHLORIDE. [Concomitant]
     Active Substance: METFORMIN HYDROCHLORIDE
     Indication: PRODUCT USED FOR UNKNOWN INDICATION
     Route: 048
     Dates: start: 2011
  11. LEVOTHYROXINE SODIUM. [Concomitant]
     Active Substance: LEVOTHYROXINE SODIUM
     Route: 048

REACTIONS (9)
  - Fall [Recovered/Resolved]
  - Vomiting [Recovered/Resolved]
  - Arterial injury [Unknown]
  - Speech disorder [Recovered/Resolved]
  - Labyrinthitis [Recovered/Resolved]
  - Product physical issue [Unknown]
  - Head injury [Unknown]
  - Headache [Recovered/Resolved]
  - Dyspnoea [Not Recovered/Not Resolved]

NARRATIVE: CASE EVENT DATE: 2014
